FAERS Safety Report 23259817 (Version 1)
Quarter: 2023Q4

REPORT INFORMATION
  Report Type: Spontaneous
  Country: JP (occurrence: JP)
  Receive Date: 20231204
  Receipt Date: 20231204
  Transmission Date: 20240109
  Serious: Yes (Death, Life-Threatening)
  Sender: FDA-Public Use
  Company Number: JP-PFIZER INC-202300418360

PATIENT
  Age: 8 Decade
  Sex: Female

DRUGS (1)
  1. IBRANCE [Suspect]
     Active Substance: PALBOCICLIB
     Indication: Breast cancer recurrent
     Dosage: UNK
     Dates: start: 202112

REACTIONS (2)
  - Cardio-respiratory arrest [Fatal]
  - Aspiration [Fatal]

NARRATIVE: CASE EVENT DATE: 20231001
